FAERS Safety Report 19443311 (Version 1)
Quarter: 2021Q2

REPORT INFORMATION
  Report Type: Spontaneous
  Country: DE (occurrence: DE)
  Receive Date: 20210621
  Receipt Date: 20210621
  Transmission Date: 20210717
  Serious: Yes (Other)
  Sender: FDA-Public Use
  Company Number: DE-009507513-2106DEU004459

PATIENT
  Age: 63 Year

DRUGS (1)
  1. PEMBROLIZUMAB. [Suspect]
     Active Substance: PEMBROLIZUMAB
     Indication: NON-SMALL CELL LUNG CANCER
     Dosage: 2ND LINE
     Dates: start: 20180530

REACTIONS (12)
  - Pulmonary fibrosis [Unknown]
  - Pneumothorax [Unknown]
  - Immune-mediated hypophysitis [Unknown]
  - Type 1 diabetes mellitus [Unknown]
  - Monocyte percentage increased [Unknown]
  - Red blood cell count decreased [Unknown]
  - Aortic arteriosclerosis [Unknown]
  - Vomiting [Unknown]
  - Malignant neoplasm progression [Unknown]
  - Aspartate aminotransferase increased [Unknown]
  - Nausea [Recovered/Resolved]
  - Asthenia [Recovered/Resolved]

NARRATIVE: CASE EVENT DATE: 20180904
